FAERS Safety Report 12173452 (Version 3)
Quarter: 2016Q1

REPORT INFORMATION
  Report Type: Spontaneous
  Country: US (occurrence: US)
  Receive Date: 20160311
  Receipt Date: 20160317
  Transmission Date: 20160526
  Serious: No
  Sender: FDA-Public Use
  Company Number: US-GALDERMA-US15006393

PATIENT
  Age: 34 Year
  Sex: Female

DRUGS (8)
  1. ESTEE LAUDER  FOUNDATION [Concomitant]
     Route: 061
     Dates: start: 201408
  2. XANAX [Concomitant]
     Active Substance: ALPRAZOLAM
     Indication: ANXIETY
     Dates: start: 201312
  3. CLINIQUE FACE WASH [Concomitant]
     Indication: THERAPEUTIC SKIN CARE TOPICAL
     Route: 061
     Dates: start: 2014, end: 201508
  4. CLINIQUE MOISTURIZER [Concomitant]
     Active Substance: COSMETICS
     Indication: DRY SKIN PROPHYLAXIS
     Route: 061
     Dates: start: 201408
  5. CLINIQUE SUNSCREEN [Concomitant]
     Indication: PROPHYLAXIS AGAINST SOLAR RADIATION
     Route: 061
  6. TRI-LUMA [Suspect]
     Active Substance: FLUOCINOLONE ACETONIDE\HYDROQUINONE\TRETINOIN
     Indication: SOLAR LENTIGO
     Route: 061
     Dates: start: 201507, end: 201507
  7. TRI-LUMA [Suspect]
     Active Substance: FLUOCINOLONE ACETONIDE\HYDROQUINONE\TRETINOIN
     Indication: CHLOASMA
     Route: 061
     Dates: start: 20150410, end: 201506
  8. LEXAPRO [Concomitant]
     Active Substance: ESCITALOPRAM OXALATE
     Indication: ANXIETY
     Dates: start: 201312

REACTIONS (3)
  - Erythema [Recovered/Resolved]
  - Drug ineffective [Not Recovered/Not Resolved]
  - Skin burning sensation [Recovered/Resolved]

NARRATIVE: CASE EVENT DATE: 201506
